FAERS Safety Report 24641413 (Version 1)
Quarter: 2024Q4

REPORT INFORMATION
  Report Type: Spontaneous
  Country: US (occurrence: None)
  Receive Date: 20241119
  Receipt Date: 20241119
  Transmission Date: 20250114
  Serious: Yes (Hospitalization)
  Sender: Public
  Company Number: None

PATIENT
  Age: 63 Year
  Sex: Male

DRUGS (7)
  1. SILDENAFIL CITRATE [Suspect]
     Active Substance: SILDENAFIL CITRATE
     Indication: Pulmonary arterial hypertension
     Dosage: FREQUENCY : 3 TIMES A DAY;?
     Route: 048
     Dates: start: 202004
  2. WINREVAIR SD [Concomitant]
  3. FLOLAN STERILE DILUENT (50ML) [Concomitant]
  4. AMBRISENTAN [Concomitant]
     Active Substance: AMBRISENTAN
  5. TREPROSTINIL [Concomitant]
     Active Substance: TREPROSTINIL
  6. COVID SHOT [Concomitant]
  7. INFLUENZA VIRUS VACCINE [Concomitant]
     Active Substance: INFLUENZA VIRUS VACCINE

REACTIONS (3)
  - Illness [None]
  - Complication associated with device [None]
  - Life support [None]

NARRATIVE: CASE EVENT DATE: 20241117
